FAERS Safety Report 14902099 (Version 2)
Quarter: 2019Q3

REPORT INFORMATION
  Report Type: Spontaneous
  Country: US (occurrence: US)
  Receive Date: 20180516
  Receipt Date: 20190828
  Transmission Date: 20191004
  Serious: Yes (Other)
  Sender: FDA-Public Use
  Company Number: US-ASTRAZENECA-2018SE64404

PATIENT
  Sex: Male

DRUGS (21)
  1. ACIPHEX [Suspect]
     Active Substance: RABEPRAZOLE SODIUM
     Dosage: UNK
     Route: 065
     Dates: start: 2003, end: 2016
  2. LISINOPRIL. [Concomitant]
     Active Substance: LISINOPRIL
  3. NORVASC [Concomitant]
     Active Substance: AMLODIPINE BESYLATE
  4. NEXIUM [Suspect]
     Active Substance: ESOMEPRAZOLE MAGNESIUM
     Dosage: UNK
     Route: 048
     Dates: start: 2003, end: 2016
  5. PROCRIT [Concomitant]
     Active Substance: ERYTHROPOIETIN
  6. ALDACTONE [Concomitant]
     Active Substance: SPIRONOLACTONE
  7. RAPAMUNE [Concomitant]
     Active Substance: SIROLIMUS
  8. LANTUS [Concomitant]
     Active Substance: INSULIN GLARGINE
  9. LOPID [Concomitant]
     Active Substance: GEMFIBROZIL
  10. GEMFIBROZIL. [Concomitant]
     Active Substance: GEMFIBROZIL
  11. PRILOSEC [Suspect]
     Active Substance: OMEPRAZOLE MAGNESIUM
     Dosage: UNK
     Route: 048
     Dates: start: 2003, end: 2016
  12. PRILOSEC OTC [Suspect]
     Active Substance: OMEPRAZOLE MAGNESIUM
     Dosage: UNK
     Route: 048
     Dates: start: 2003, end: 2016
  13. PROTONIX [Suspect]
     Active Substance: PANTOPRAZOLE SODIUM
     Dosage: UNK
     Route: 065
     Dates: start: 2003, end: 2016
  14. ATORVASTATIN [Concomitant]
     Active Substance: ATORVASTATIN
  15. DEXILANT [Suspect]
     Active Substance: DEXLANSOPRAZOLE
     Dosage: UNK
     Route: 065
     Dates: start: 2003, end: 2016
  16. NEUPOGEN [Concomitant]
     Active Substance: FILGRASTIM
  17. NEXIUM 24HR [Suspect]
     Active Substance: ESOMEPRAZOLE MAGNESIUM
     Dosage: UNK
     Route: 048
     Dates: start: 2003, end: 2016
  18. VIMOVO [Suspect]
     Active Substance: ESOMEPRAZOLE MAGNESIUM\NAPROXEN
     Dosage: UNK
     Route: 048
     Dates: start: 2003, end: 2016
  19. PREVACID [Suspect]
     Active Substance: LANSOPRAZOLE
     Dosage: UNK
     Route: 065
     Dates: start: 2003, end: 2016
  20. PREVACID 24 HR [Suspect]
     Active Substance: LANSOPRAZOLE
     Dosage: UNK
     Route: 065
     Dates: start: 2003, end: 2016
  21. LOMOTIL [Concomitant]
     Active Substance: ATROPINE SULFATE\DIPHENOXYLATE HYDROCHLORIDE

REACTIONS (3)
  - Acute kidney injury [Unknown]
  - Renal failure [Unknown]
  - Chronic kidney disease [Unknown]
